FAERS Safety Report 11661851 (Version 1)
Quarter: 2015Q4

REPORT INFORMATION
  Report Type: Spontaneous
  Country: JP (occurrence: JP)
  Receive Date: 20151026
  Receipt Date: 20151026
  Transmission Date: 20160304
  Serious: Yes (Hospitalization, Other)
  Sender: FDA-Public Use
  Company Number: PHJP1998JP001489

PATIENT
  Age: 10 Year

DRUGS (3)
  1. VOLTAREN [Suspect]
     Active Substance: DICLOFENAC SODIUM
     Indication: MALAISE
  2. MINOCYCLINE\MINOCYCLINE HYDROCHLORIDE [Concomitant]
     Active Substance: MINOCYCLINE\MINOCYCLINE HYDROCHLORIDE
     Indication: PRODUCT USED FOR UNKNOWN INDICATION
     Dosage: 150 MG, TID
  3. VOLTAREN [Suspect]
     Active Substance: DICLOFENAC SODIUM
     Indication: PYREXIA
     Dosage: 75 MG, QD
     Dates: start: 19981019

REACTIONS (14)
  - Erythema [Unknown]
  - Renal failure [Unknown]
  - Abdominal abscess [Unknown]
  - Urine output increased [Unknown]
  - Pyrexia [Unknown]
  - Haematuria [Unknown]
  - Tubulointerstitial nephritis [Unknown]
  - Diarrhoea [Unknown]
  - Haemodialysis [None]
  - Pyelonephritis [Unknown]
  - Urine output decreased [Unknown]
  - Anaemia [Unknown]
  - Normochromic normocytic anaemia [None]
  - Oliguria [Unknown]
